FAERS Safety Report 16624839 (Version 1)
Quarter: 2019Q3

REPORT INFORMATION
  Report Type: Spontaneous
  Country: US (occurrence: US)
  Receive Date: 20190611
  Receipt Date: 20190611
  Transmission Date: 20191004
  Serious: No
  Sender: FDA-Public Use
  Company Number: None

PATIENT
  Sex: Male

DRUGS (5)
  1. XOLAIR [Suspect]
     Active Substance: OMALIZUMAB
     Indication: PRODUCT USED FOR UNKNOWN INDICATION
     Dosage: ?          OTHER DOSE:4ML VIAL;?
     Route: 058
     Dates: start: 20150223
  2. MONTELUKAST TAB [Concomitant]
  3. LEXAPRO TAB [Concomitant]
  4. ADVAIR DISKU AER [Concomitant]
  5. ALBUTEROL AER [Concomitant]

REACTIONS (1)
  - Off label use [None]
